FAERS Safety Report 8464559-X (Version None)
Quarter: 2012Q2

REPORT INFORMATION
  Report Type: 
  Country: None (occurrence: None)
  Receive Date: 20120620
  Receipt Date: 20120620
  Transmission Date: 20120825
  Serious: Yes (Other)
  Sender: FDA-Public Use
  Company Number: None

PATIENT
  Age: 60 Year
  Sex: Female
  Weight: 68.0396 kg

DRUGS (9)
  1. SYNTHROID [Concomitant]
  2. CALCIUM [Concomitant]
  3. OMEGA VITAMIN (FISH OIL) [Concomitant]
  4. VITAMIN B (VITAMIN B NOS) [Concomitant]
  5. GLUCOSAMINE [Concomitant]
  6. MILK THISTLE (SILYBUM MARIANUM) [Concomitant]
  7. LISTERINE AGENT COOL BLUE GLACIER MINT (ORAL CARE PRODUCTS) LIQUID [Suspect]
     Indication: DENTAL DISORDER PROPHYLAXIS
     Dosage: 10 ML, 1 IN 1 DAY, ORAL
     Route: 048
     Dates: start: 20120323, end: 20120323
  8. MULTI-VITAMINS [Concomitant]
  9. VITAMIN D [Concomitant]

REACTIONS (12)
  - HYPERSENSITIVITY [None]
  - EXPIRED DRUG ADMINISTERED [None]
  - DYSPHONIA [None]
  - JAW DISORDER [None]
  - EATING DISORDER [None]
  - HEADACHE [None]
  - FATIGUE [None]
  - MALAISE [None]
  - DYSPNOEA [None]
  - DRUG DISPENSING ERROR [None]
  - CHEMICAL INJURY [None]
  - HYPOAESTHESIA [None]
